FAERS Safety Report 9807421 (Version 1)
Quarter: 2014Q1

REPORT INFORMATION
  Report Type: Spontaneous
  Country: US (occurrence: US)
  Receive Date: 20140110
  Receipt Date: 20140110
  Transmission Date: 20141002
  Serious: No
  Sender: FDA-Public Use
  Company Number: US-TARO-2013P1019797

PATIENT
  Age: 32 Month
  Sex: Male

DRUGS (1)
  1. TRIAMCINOLONE ACETONIDE CREAM USP 0.1% [Suspect]
     Indication: RASH
     Route: 061
     Dates: start: 20130505

REACTIONS (1)
  - Drug ineffective [Not Recovered/Not Resolved]
